FAERS Safety Report 12653632 (Version 1)
Quarter: 2016Q3

REPORT INFORMATION
  Report Type: Report from Study
  Country: US (occurrence: US)
  Receive Date: 20160815
  Receipt Date: 20160815
  Transmission Date: 20161109
  Serious: Yes (Other)
  Sender: FDA-Public Use
  Company Number: US-AMGEN-USASL2016103023

PATIENT
  Age: 58 Year
  Sex: Female

DRUGS (2)
  1. ENBREL [Suspect]
     Active Substance: ETANERCEPT
     Dosage: 50 MG, Q2WK
     Route: 065
  2. ENBREL [Suspect]
     Active Substance: ETANERCEPT
     Indication: RHEUMATOID ARTHRITIS
     Dosage: 50 MG, QWK
     Route: 065

REACTIONS (22)
  - Lymphocytic leukaemia [Unknown]
  - Gait disturbance [Not Recovered/Not Resolved]
  - Intentional product misuse [Unknown]
  - Dizziness [Unknown]
  - Dyskinesia [Not Recovered/Not Resolved]
  - Hyperkeratosis [Unknown]
  - Muscle spasms [Not Recovered/Not Resolved]
  - Frustration tolerance decreased [Unknown]
  - Depression [Unknown]
  - Osteoarthritis [Unknown]
  - Neck pain [Unknown]
  - Insomnia [Unknown]
  - Drug effect delayed [Unknown]
  - Pain [Not Recovered/Not Resolved]
  - Discomfort [Not Recovered/Not Resolved]
  - Condition aggravated [Not Recovered/Not Resolved]
  - Pain in extremity [Unknown]
  - Pain in jaw [Unknown]
  - Neuralgia [Unknown]
  - Fatigue [Unknown]
  - Arthritis [Unknown]
  - Facial pain [Unknown]

NARRATIVE: CASE EVENT DATE: 2014
